FAERS Safety Report 8390136-5 (Version None)
Quarter: 2012Q2

REPORT INFORMATION
  Report Type: 
  Country: None (occurrence: None)
  Receive Date: 20120529
  Receipt Date: 20120522
  Transmission Date: 20120825
  Serious: Yes (Other)
  Sender: FDA-Public Use
  Company Number: US-BAYER-2012-050574

PATIENT
  Age: 60 Year
  Sex: Female

DRUGS (5)
  1. BETASERON [Suspect]
     Dosage: 5 MIU, QOD
     Route: 058
     Dates: start: 20120514
  2. ACID REFLUX MEDICATION [Concomitant]
     Indication: GASTROOESOPHAGEAL REFLUX DISEASE
  3. BETASERON [Suspect]
     Dosage: UNK
     Route: 058
     Dates: start: 20091117, end: 20100716
  4. BETASERON [Suspect]
     Indication: RELAPSING-REMITTING MULTIPLE SCLEROSIS
     Dosage: UNK
     Route: 058
     Dates: start: 19950815, end: 20040601
  5. BETASERON [Suspect]
     Dosage: UNK
     Route: 058
     Dates: start: 20101019, end: 20120420

REACTIONS (5)
  - SYNCOPE [None]
  - FALL [None]
  - ASTHENIA [None]
  - LOSS OF CONSCIOUSNESS [None]
  - DEHYDRATION [None]
